FAERS Safety Report 16058239 (Version 1)
Quarter: 2019Q1

REPORT INFORMATION
  Report Type: Report from Study
  Country: ES (occurrence: ES)
  Receive Date: 20190311
  Receipt Date: 20190311
  Transmission Date: 20190418
  Serious: Yes (Other)
  Sender: FDA-Public Use
  Company Number: ES-TEVA-2019-ES-1021063

PATIENT
  Age: 7 Year
  Sex: Male

DRUGS (5)
  1. METILPREDNISOLONA (888A) [Interacting]
     Active Substance: METHYLPREDNISOLONE
     Indication: STEM CELL TRANSPLANT
     Route: 042
     Dates: start: 20170810
  2. FLUDARABINA FOSFATO (3698FO) [Suspect]
     Active Substance: FLUDARABINE PHOSPHATE
     Indication: STEM CELL TRANSPLANT
     Dosage: 43 MILLIGRAM DAILY;
     Route: 042
     Dates: start: 20170729, end: 20170731
  3. CICLOSPORINA (406A) [Interacting]
     Active Substance: CYCLOSPORINE
     Indication: STEM CELL TRANSPLANT
     Route: 042
     Dates: start: 20170801
  4. BUSULFANO (76A) [Interacting]
     Active Substance: BUSULFAN
     Indication: STEM CELL TRANSPLANT
     Dosage: 99 MILLIGRAM DAILY;
     Route: 042
     Dates: start: 20170729, end: 20170731
  5. TIOTEPA (747A) [Interacting]
     Active Substance: THIOTEPA
     Indication: STEM CELL TRANSPLANT
     Dosage: 112.5 MILLIGRAM DAILY;
     Route: 042
     Dates: start: 20170727, end: 20170728

REACTIONS (4)
  - Stomatitis [Recovered/Resolved]
  - Rhinovirus infection [Recovered/Resolved]
  - Drug interaction [Unknown]
  - Stem cell transplant [None]

NARRATIVE: CASE EVENT DATE: 20170812
